FAERS Safety Report 4745803-9 (Version None)
Quarter: 2005Q3

REPORT INFORMATION
  Report Type: 
  Country: None (occurrence: None)
  Receive Date: 20050815
  Receipt Date: 20050815
  Transmission Date: 20060218
  Serious: Yes (Other)
  Sender: FDA-Public Use
  Company Number: None

PATIENT
  Sex: Female
  Weight: 92.9874 kg

DRUGS (2)
  1. PAXIL [Suspect]
     Indication: ANXIETY
     Dosage: 20MG   1 A DAY  ORAL
     Route: 048
     Dates: start: 20020713, end: 20050812
  2. PAXIL [Suspect]
     Indication: DEPRESSION
     Dosage: 20MG   1 A DAY  ORAL
     Route: 048
     Dates: start: 20020713, end: 20050812

REACTIONS (1)
  - UNEVALUABLE EVENT [None]
